FAERS Safety Report 10506870 (Version 1)
Quarter: 2014Q3

REPORT INFORMATION
  Report Type: Spontaneous
  Country: US (occurrence: None)
  Receive Date: 20140915
  Receipt Date: 20140915
  Transmission Date: 20150326
  Serious: Yes (Other)
  Sender: FDA-Public Use
  Company Number: 2013-US-000031

PATIENT
  Age: 18 Year
  Sex: Female
  Weight: 49.9 kg

DRUGS (10)
  1. NADOLOL(NADOLOL) [Concomitant]
  2. XYREM [Suspect]
     Active Substance: SODIUM OXYBATE
     Indication: CATAPLEXY
     Dates: start: 20100121
  3. ELAVIL(AMITRIPTYLINE HYDROCHLORIDE) [Concomitant]
  4. NATIAZIA(DIENOGEST, ESTRADIOL VALERATE) [Concomitant]
  5. DIVALPROEX SODIUM DISPENSING SOLUTIONS(VALPROATE SEMISODIUM) [Concomitant]
  6. PERIACTIN(CYPROHEPTADINE HYDROCHLORIDE) [Concomitant]
  7. XYREM [Suspect]
     Active Substance: SODIUM OXYBATE
     Indication: NARCOLEPSY
     Dates: start: 20100121
  8. ZANTAC [Concomitant]
     Active Substance: RANITIDINE HYDROCHLORIDE
  9. FIORICET(BUTALBITAL, CAFFEINE, PARACETAMOL) [Concomitant]
  10. PHENERGAN(PROMETHAZINE HYDROCHLORIDE) [Concomitant]

REACTIONS (2)
  - Suicidal ideation [None]
  - Migraine [None]

NARRATIVE: CASE EVENT DATE: 20130801
